FAERS Safety Report 6536449-0 (Version None)
Quarter: 2010Q1

REPORT INFORMATION
  Report Type: 
  Country: None (occurrence: None)
  Receive Date: 20100113
  Receipt Date: 20100108
  Transmission Date: 20100710
  Serious: Yes (Life-Threatening, Hospitalization)
  Sender: FDA-Public Use
  Company Number: US-MERCK-0805USA00952

PATIENT
  Age: 79 Year
  Sex: Male

DRUGS (10)
  1. ZOCOR [Suspect]
     Indication: HYPERLIPIDAEMIA
     Route: 048
  2. FLUCONAZOLE [Suspect]
     Indication: ANTIFUNGAL TREATMENT
     Route: 065
  3. THIAMINE [Concomitant]
     Route: 065
  4. FOLIC ACID [Concomitant]
     Route: 065
  5. INSULIN [Concomitant]
     Indication: DIABETES MELLITUS
     Route: 065
  6. PRINIVIL [Concomitant]
     Indication: HYPERTENSION
     Route: 048
  7. TERAZOSIN HYDROCHLORIDE [Concomitant]
     Route: 065
  8. TOLTERODINE [Concomitant]
     Route: 065
  9. GOSERELIN [Concomitant]
     Route: 065
  10. MOMETASONE FUROATE [Concomitant]
     Route: 055

REACTIONS (12)
  - BLOOD CREATINE PHOSPHOKINASE INCREASED [None]
  - DRUG INTERACTION [None]
  - DYSPHAGIA [None]
  - HEMIPARESIS [None]
  - MASTICATION DISORDER [None]
  - MYOGLOBINURIA [None]
  - NAUSEA [None]
  - RENAL FAILURE ACUTE [None]
  - RHABDOMYOLYSIS [None]
  - SPEECH DISORDER [None]
  - TRANSIENT ISCHAEMIC ATTACK [None]
  - VOMITING [None]
